FAERS Safety Report 7757011-8 (Version None)
Quarter: 2011Q3

REPORT INFORMATION
  Report Type: 
  Country: None (occurrence: None)
  Receive Date: 20110916
  Receipt Date: 20110822
  Transmission Date: 20111222
  Serious: Yes (Other)
  Sender: FDA-Public Use
  Company Number: FR-UCBSA-036377

PATIENT
  Sex: Male
  Weight: 89 kg

DRUGS (12)
  1. CLONAZEPAM [Concomitant]
     Route: 048
  2. ACETAMINOPHEN [Concomitant]
     Dosage: 1 TO 4
     Route: 048
  3. NIFUGEL [Concomitant]
     Route: 003
  4. VIMPAT [Suspect]
     Indication: NEURALGIA
     Dosage: TWO DOSAGE FORMS ONCE A DAY
     Route: 048
     Dates: start: 20110526, end: 20110610
  5. CREON [Concomitant]
     Dosage: 25000, 2 DOSES  3 TIMES DAILY
     Route: 048
  6. VIMPAT [Suspect]
     Indication: EPILEPSY
     Dosage: TWO DOSAGE FORMS ONCE A DAY
     Route: 048
     Dates: start: 20110526, end: 20110610
  7. METEOSPASMYL [Concomitant]
     Dosage: 2-3 INTAKES DAILY
     Route: 048
  8. TEMGESIC [Concomitant]
     Route: 048
  9. MOTILIUM [Concomitant]
     Indication: NAUSEA
     Dosage: 10 MG; 1 OR 2 TABLETS
     Route: 048
  10. DELURSAN [Concomitant]
     Route: 048
  11. LOPERAMIDE [Concomitant]
     Indication: DIARRHOEA
     Route: 048
  12. SMECTA [Concomitant]
     Route: 048

REACTIONS (8)
  - IMPAIRED DRIVING ABILITY [None]
  - ANXIETY [None]
  - DIZZINESS [None]
  - SUICIDAL IDEATION [None]
  - CEREBRAL DISORDER [None]
  - PANIC REACTION [None]
  - DISORIENTATION [None]
  - HEART RATE INCREASED [None]
